FAERS Safety Report 25896456 (Version 1)
Quarter: 2025Q4

REPORT INFORMATION
  Report Type: Spontaneous
  Country: US (occurrence: US)
  Receive Date: 20251008
  Receipt Date: 20251008
  Transmission Date: 20260118
  Serious: No
  Sender: COSETTE PHARMACEUTICALS INC
  Company Number: US-COSETTE-CP2025US000965

PATIENT
  Age: 5 Year
  Sex: Female

DRUGS (1)
  1. GRISEOFULVIN [Suspect]
     Active Substance: GRISEOFULVIN
     Indication: Tinea capitis
     Route: 065

REACTIONS (2)
  - Skin odour abnormal [Unknown]
  - Hair growth abnormal [Unknown]
